FAERS Safety Report 19181981 (Version 2)
Quarter: 2021Q2

REPORT INFORMATION
  Report Type: Spontaneous
  Country: BR (occurrence: BR)
  Receive Date: 20210426
  Receipt Date: 20210512
  Transmission Date: 20210717
  Serious: Yes (Other)
  Sender: FDA-Public Use
  Company Number: BR-BAYER-2021-129505

PATIENT
  Age: 52 Year
  Sex: Female

DRUGS (2)
  1. STIVARGA [Suspect]
     Active Substance: REGORAFENIB
     Indication: RECTAL CANCER METASTATIC
     Dosage: 160 MG, QD FOR 21 DAYS EVERY 28 DAYS
     Route: 048
     Dates: end: 202012
  2. STIVARGA [Suspect]
     Active Substance: REGORAFENIB
     Indication: RECTAL CANCER METASTATIC
     Dosage: PROGRESSIVE DOSE ESCALATION UNTIL 160 MG, QD FOR 21 DAYS EVERY 28 DAYS
     Route: 048
     Dates: start: 202003

REACTIONS (13)
  - Mucosal inflammation [None]
  - Metastases to peritoneum [None]
  - Abdominal pain [None]
  - Off label use [None]
  - Carcinoembryonic antigen increased [None]
  - Palmar-plantar erythrodysaesthesia syndrome [None]
  - Transaminases increased [None]
  - Bilirubin conjugated increased [None]
  - Metastases to lung [None]
  - Fatigue [None]
  - Pyrexia [None]
  - Rectal cancer metastatic [None]
  - Metastases to liver [None]

NARRATIVE: CASE EVENT DATE: 202003
